FAERS Safety Report 8163669-4 (Version None)
Quarter: 2012Q1

REPORT INFORMATION
  Report Type: 
  Country: None (occurrence: None)
  Receive Date: 20120224
  Receipt Date: 20120214
  Transmission Date: 20120608
  Serious: Yes (Hospitalization)
  Sender: FDA-Public Use
  Company Number: US-ABBOTT-12P-163-0906581-00

PATIENT
  Age: 65 Year
  Sex: Male

DRUGS (29)
  1. HYOSCYAMINE [Concomitant]
     Indication: PRODUCT USED FOR UNKNOWN INDICATION
  2. CIALIS [Concomitant]
     Indication: PRODUCT USED FOR UNKNOWN INDICATION
  3. TIZANIDINE HCL [Concomitant]
     Indication: RESTLESS LEGS SYNDROME
     Dosage: 2 MG AT BEDTIME
  4. ANTIDIARRHEA [Concomitant]
     Indication: DIARRHOEA
     Dosage: 1 PILL DAILY
  5. NEURONTIN [Concomitant]
     Indication: MIGRAINE
  6. LYRICA [Concomitant]
  7. BUDESONIDE [Concomitant]
     Indication: SCAR
  8. HUMIRA [Suspect]
     Indication: CROHN'S DISEASE
     Dates: start: 20120102
  9. EFFEXOR XR [Concomitant]
     Indication: DEPRESSION
  10. FLAGYL [Concomitant]
     Indication: FLATULENCE
  11. ETODOLAC [Concomitant]
     Indication: PRODUCT USED FOR UNKNOWN INDICATION
  12. RANITIDINE [Concomitant]
     Indication: GASTROOESOPHAGEAL REFLUX DISEASE
     Dosage: 300 MG AT BEDTIME
  13. BUPROPION HCL [Concomitant]
     Indication: PRODUCT USED FOR UNKNOWN INDICATION
  14. LYRICA [Concomitant]
     Indication: MUSCLE SPASMS
  15. ASPIRIN [Concomitant]
     Indication: PRODUCT USED FOR UNKNOWN INDICATION
  16. LIPITOR [Concomitant]
     Indication: BLOOD CHOLESTEROL INCREASED
     Dosage: 40 MG AT BEDTIME
  17. VITAMIN E [Concomitant]
     Indication: PRODUCT USED FOR UNKNOWN INDICATION
  18. PROVIGIL [Concomitant]
     Indication: INSOMNIA
  19. MULTI-VITAMIN [Concomitant]
     Indication: PRODUCT USED FOR UNKNOWN INDICATION
     Dosage: DAILY
  20. RAPAFLO [Concomitant]
     Indication: PRODUCT USED FOR UNKNOWN INDICATION
  21. ALIGN [Concomitant]
     Indication: DIARRHOEA
  22. MIRAPEX [Concomitant]
     Indication: PRODUCT USED FOR UNKNOWN INDICATION
     Dosage: 9 PILLS DAILY
  23. FLONASE [Concomitant]
     Indication: PRODUCT USED FOR UNKNOWN INDICATION
     Dosage: 6 SPRAYS DAILY AS NEEDED
  24. VITAMIN B COMPLEX WITH FOLIC ACID [Concomitant]
     Indication: PRODUCT USED FOR UNKNOWN INDICATION
     Dosage: 1 PILL DAILY
  25. PLAVIX [Suspect]
     Indication: PRODUCT USED FOR UNKNOWN INDICATION
  26. NITROGLYCERIN [Concomitant]
     Indication: CHEST PAIN
     Dosage: 0.4 MG AS NEEDED
  27. ALLEGRA [Concomitant]
     Indication: NASAL CONGESTION
  28. QUINAPRIL AND HYDROCHLOROTHIAZIDE [Concomitant]
     Indication: PRODUCT USED FOR UNKNOWN INDICATION
     Dosage: 20/25 MG TWICE DAILY
  29. RANITIDINE [Concomitant]
     Indication: ABDOMINAL DISTENSION

REACTIONS (7)
  - LUNG DISORDER [None]
  - FACIAL BONES FRACTURE [None]
  - LACERATION [None]
  - HAEMORRHAGE [None]
  - RIB FRACTURE [None]
  - DYSPNOEA [None]
  - FALL [None]
